FAERS Safety Report 6691431-8 (Version None)
Quarter: 2010Q2

REPORT INFORMATION
  Report Type: 
  Country: None (occurrence: None)
  Receive Date: 20100416
  Receipt Date: 20100402
  Transmission Date: 20101027
  Serious: Yes (Death)
  Sender: FDA-Public Use
  Company Number: MPS1-1000316

PATIENT
  Age: 11 Year
  Sex: Female

DRUGS (1)
  1. ALDURAZYME [Suspect]
     Indication: MUCOPOLYSACCHARIDOSIS I
     Dosage: 0.58 MG/KG, 1X/W, INTRAVENOUS; INTRATHECAL
     Dates: start: 20030610

REACTIONS (6)
  - ARTHRALGIA [None]
  - CHILLS [None]
  - HYPERTENSION [None]
  - INFLUENZA [None]
  - MYALGIA [None]
  - PYREXIA [None]
